FAERS Safety Report 20302207 (Version 2)
Quarter: 2022Q1

REPORT INFORMATION
  Report Type: Spontaneous
  Country: US (occurrence: US)
  Receive Date: 20220106
  Receipt Date: 20220211
  Transmission Date: 20220424
  Serious: Yes (Hospitalization)
  Sender: FDA-Public Use
  Company Number: US-ELI_LILLY_AND_COMPANY-US202112006651

PATIENT
  Sex: Male
  Weight: 136.05 kg

DRUGS (1)
  1. TALTZ [Suspect]
     Active Substance: IXEKIZUMAB
     Indication: Psoriasis
     Dosage: 160 MG, OTHER (INITIAL DOSE), EVERY TWO WEEKS
     Route: 058
     Dates: start: 20211203

REACTIONS (3)
  - Staphylococcal abscess [Recovered/Resolved]
  - Sepsis [Recovered/Resolved]
  - Pyrexia [Unknown]
